FAERS Safety Report 14666973 (Version 1)
Quarter: 2018Q1

REPORT INFORMATION
  Report Type: Spontaneous
  Country: FR (occurrence: FR)
  Receive Date: 20180322
  Receipt Date: 20180322
  Transmission Date: 20180509
  Serious: Yes (Other)
  Sender: FDA-Public Use
  Company Number: FR-MERCK KGAA-2044264

PATIENT
  Age: 54 Year
  Sex: Female

DRUGS (1)
  1. NOVOTHYROX [Suspect]
     Active Substance: LEVOTHYROXINE SODIUM
     Indication: PRODUCT USED FOR UNKNOWN INDICATION

REACTIONS (22)
  - Mucosal dryness [None]
  - Visual impairment [None]
  - Nervousness [None]
  - Dizziness [None]
  - Headache [None]
  - Dry eye [None]
  - Gait disturbance [None]
  - Fatigue [None]
  - Emotional distress [None]
  - Loss of personal independence in daily activities [None]
  - Social avoidant behaviour [None]
  - Depression [None]
  - Irritability [None]
  - Feeling abnormal [None]
  - Vertigo [None]
  - Weight increased [None]
  - Tri-iodothyronine free decreased [None]
  - Insomnia [None]
  - Migraine [None]
  - Muscle spasms [None]
  - Nausea [None]
  - Alopecia [None]

NARRATIVE: CASE EVENT DATE: 20170929
